FAERS Safety Report 10248359 (Version 1)
Quarter: 2014Q2

REPORT INFORMATION
  Report Type: Spontaneous
  Country: US (occurrence: US)
  Receive Date: 20140620
  Receipt Date: 20140620
  Transmission Date: 20141212
  Serious: No
  Sender: FDA-Public Use
  Company Number: US-ASTRAZENECA-2014SE40507

PATIENT
  Age: 73 Year
  Sex: Female
  Weight: 86.2 kg

DRUGS (4)
  1. NEXIUM [Suspect]
     Indication: GASTROOESOPHAGEAL REFLUX DISEASE
     Route: 048
     Dates: start: 2007
  2. NEXIUM [Suspect]
     Indication: EROSIVE OESOPHAGITIS
     Route: 048
     Dates: start: 2007
  3. ADVAIR [Concomitant]
     Indication: EMPHYSEMA
     Dosage: UNKNOWN UNK
     Route: 048
     Dates: start: 2007
  4. SPIRIVA [Concomitant]
     Indication: EMPHYSEMA
     Dosage: UNKNOWN UNK
     Route: 048
     Dates: start: 2007

REACTIONS (4)
  - Chronic obstructive pulmonary disease [Not Recovered/Not Resolved]
  - Gastrooesophageal reflux disease [Recovered/Resolved]
  - Emphysema [Unknown]
  - Intentional product misuse [Not Recovered/Not Resolved]
